FAERS Safety Report 16431358 (Version 1)
Quarter: 2019Q2

REPORT INFORMATION
  Report Type: Spontaneous
  Country: US (occurrence: US)
  Receive Date: 20190614
  Receipt Date: 20190614
  Transmission Date: 20190711
  Serious: No
  Sender: FDA-Public Use
  Company Number: US-MYLANLABS-2019M1054834

PATIENT
  Age: 35 Year
  Sex: Female
  Weight: 73 kg

DRUGS (1)
  1. AMNESTEEM [Suspect]
     Active Substance: ISOTRETINOIN
     Indication: ACNE
     Dosage: UNK
     Route: 048
     Dates: start: 20190404, end: 201905

REACTIONS (3)
  - Dry skin [Recovered/Resolved]
  - Eczema [Recovered/Resolved]
  - Rash [Recovered/Resolved]

NARRATIVE: CASE EVENT DATE: 201905
